FAERS Safety Report 8296606-2 (Version None)
Quarter: 2012Q2

REPORT INFORMATION
  Report Type: 
  Country: None (occurrence: None)
  Receive Date: 20120418
  Receipt Date: 20120418
  Transmission Date: 20120825
  Serious: Yes (Hospitalization)
  Sender: FDA-Public Use
  Company Number: None

PATIENT
  Sex: Female
  Weight: 66.5 kg

DRUGS (1)
  1. PRAVASTATIN [Suspect]
     Indication: HYPERLIPIDAEMIA
     Dates: start: 20120330, end: 20120403

REACTIONS (3)
  - PRODUCT QUALITY ISSUE [None]
  - URTICARIA [None]
  - ANGIOEDEMA [None]
